FAERS Safety Report 5179144-5 (Version None)
Quarter: 2006Q4

REPORT INFORMATION
  Report Type: 
  Country: None (occurrence: None)
  Receive Date: 20061218
  Receipt Date: 20061218
  Transmission Date: 20070319
  Serious: Yes (Hospitalization)
  Sender: FDA-Public Use
  Company Number: None

PATIENT
  Sex: Male
  Weight: 86.49 kg

DRUGS (1)
  1. CISPLATIN [Suspect]
     Dosage: 100 MG
     Dates: end: 20061106

REACTIONS (9)
  - ASTHENIA [None]
  - CHOKING [None]
  - DEHYDRATION [None]
  - OESOPHAGITIS [None]
  - ORAL INTAKE REDUCED [None]
  - PRODUCTIVE COUGH [None]
  - PYREXIA [None]
  - STOMATITIS [None]
  - VOMITING [None]
